FAERS Safety Report 4455533-9 (Version None)
Quarter: 2004Q3

REPORT INFORMATION
  Report Type: 
  Country: None (occurrence: None)
  Receive Date: 20040917
  Receipt Date: 20040901
  Transmission Date: 20050211
  Serious: Yes (Hospitalization)
  Sender: FDA-Public Use
  Company Number: CA_040807184

PATIENT
  Age: 12 Year
  Sex: Male
  Weight: 44 kg

DRUGS (4)
  1. HUMATROPE [Suspect]
     Indication: GROWTH HORMONE DEFICIENCY
     Dosage: 12 MG/6 WEEK
     Dates: start: 20000401, end: 20040809
  2. L-THYROXINE [Concomitant]
  3. LUPRON DEPOT (LEUPRORELIN) [Concomitant]
  4. CARBAMAZEPINE [Concomitant]

REACTIONS (1)
  - CEREBRAL NEUROBLASTOMA [None]
